FAERS Safety Report 8783128 (Version 1)
Quarter: 2012Q4

REPORT INFORMATION
  Report Type: 
  Country: US (occurrence: US)
  Receive Date: 20120913
  Receipt Date: 20120913
  Transmission Date: 20130627
  Serious: Yes (Other)
  Sender: FDA-Public Use
  Company Number: US-JNJFOC-20120903652

PATIENT
  Age: 33 Year
  Sex: Male

DRUGS (3)
  1. REMICADE [Suspect]
     Indication: CROHN^S DISEASE
     Route: 042
     Dates: start: 201108
  2. REMICADE [Suspect]
     Indication: CROHN^S DISEASE
     Route: 042
  3. STEROIDS NOS [Concomitant]
     Route: 065

REACTIONS (1)
  - Surgery [Unknown]
